FAERS Safety Report 4892596-0 (Version None)
Quarter: 2006Q1

REPORT INFORMATION
  Report Type: 
  Country: None (occurrence: None)
  Receive Date: 20060126
  Receipt Date: 20060119
  Transmission Date: 20060701
  Serious: Yes (Hospitalization)
  Sender: FDA-Public Use
  Company Number: US-JNJFOC-20060104260

PATIENT
  Sex: Female
  Weight: 84.37 kg

DRUGS (11)
  1. INFLIXIMAB [Suspect]
     Indication: RHEUMATOID ARTHRITIS
     Route: 042
  2. METHOTREXATE [Concomitant]
  3. ZOLOFT [Concomitant]
  4. WELLBUTRIN [Concomitant]
  5. ULTRAM [Concomitant]
  6. PREDNISONE [Concomitant]
  7. LASIX [Concomitant]
  8. QUININE SULFATE [Concomitant]
  9. METOPROLOL [Concomitant]
  10. ACCUPRIL [Concomitant]
  11. PROTONIX [Concomitant]

REACTIONS (2)
  - BENIGN GASTROINTESTINAL NEOPLASM [None]
  - CANDIDIASIS [None]
